FAERS Safety Report 8178292-5 (Version None)
Quarter: 2012Q1

REPORT INFORMATION
  Report Type: 
  Country: None (occurrence: None)
  Receive Date: 20120126
  Receipt Date: 20111028
  Transmission Date: 20120608
  Serious: No
  Sender: FDA-Public Use
  Company Number: PHHY2011US58716

PATIENT
  Age: 7 Year
  Sex: Male

DRUGS (4)
  1. RISPERDAL [Concomitant]
  2. METADATE CD [Concomitant]
  3. AFINITOR [Suspect]
     Indication: ASTROCYTOMA
     Dosage: 2.5 MG, DAILY, ORAL : 5 MG, DAILY, ORAL
     Route: 048
     Dates: start: 20110625
  4. FOCALIN [Concomitant]

REACTIONS (6)
  - ORAL PAIN [None]
  - APHTHOUS STOMATITIS [None]
  - ABNORMAL BEHAVIOUR [None]
  - GINGIVAL ERYTHEMA [None]
  - MOUTH ULCERATION [None]
  - PSYCHOMOTOR HYPERACTIVITY [None]
